FAERS Safety Report 11672300 (Version 1)
Quarter: 2015Q4

REPORT INFORMATION
  Report Type: Spontaneous
  Country: US (occurrence: US)
  Receive Date: 20151028
  Receipt Date: 20151028
  Transmission Date: 20160304
  Serious: Yes (Hospitalization, Other)
  Sender: FDA-Public Use
  Company Number: US-BEH-2015054852

PATIENT
  Sex: Female

DRUGS (1)
  1. HIZENTRA [Suspect]
     Active Substance: HUMAN IMMUNOGLOBULIN G
     Indication: IMMUNODEFICIENCY COMMON VARIABLE
     Dosage: MOST RECENT DOSE
     Dates: start: 20151014, end: 20151014

REACTIONS (3)
  - Breast cellulitis [Unknown]
  - Abdominal pain [Unknown]
  - Clostridium difficile infection [Unknown]
